FAERS Safety Report 22339517 (Version 2)
Quarter: 2023Q2

REPORT INFORMATION
  Report Type: Spontaneous
  Country: GR (occurrence: GR)
  Receive Date: 20230518
  Receipt Date: 20230527
  Transmission Date: 20230721
  Serious: Yes (Other)
  Sender: FDA-Public Use
  Company Number: GR-AMGEN-GRCSP2023081973

PATIENT
  Age: 43 Year
  Sex: Male

DRUGS (5)
  1. BEVACIZUMAB [Suspect]
     Active Substance: BEVACIZUMAB
     Indication: Adenocarcinoma of colon
     Dosage: UNK, Q2WK
     Route: 065
     Dates: start: 2020
  2. FLUOROURACIL\IRINOTECAN\LEUCOVORIN [Concomitant]
     Active Substance: FLUOROURACIL\IRINOTECAN\LEUCOVORIN
     Indication: Adenocarcinoma of colon
     Dosage: UNK, Q2WK
     Dates: start: 2020
  3. CAPECITABINE [Concomitant]
     Active Substance: CAPECITABINE
     Indication: Adenocarcinoma of colon
     Dosage: UNK
     Dates: start: 202012
  4. AFLIBERCEPT;CALCIUM FOLINATE;FLUOROURACIL;IRINOTECAN HYDROCHLORIDE [Concomitant]
     Indication: Adenocarcinoma of colon
     Dosage: UNK, Q2WK
     Route: 065
     Dates: start: 2021
  5. TIPIRACIL HYDROCHLORIDE\TRIFLURIDINE [Concomitant]
     Active Substance: TIPIRACIL HYDROCHLORIDE\TRIFLURIDINE
     Indication: Adenocarcinoma of colon
     Dosage: UNK
     Route: 065
     Dates: start: 202110

REACTIONS (1)
  - Adenocarcinoma of colon [Unknown]

NARRATIVE: CASE EVENT DATE: 20210101
